FAERS Safety Report 5644875-7 (Version None)
Quarter: 2008Q1

REPORT INFORMATION
  Report Type: 
  Country: None (occurrence: None)
  Receive Date: 20080229
  Receipt Date: 20070928
  Transmission Date: 20080703
  Serious: No
  Sender: FDA-Public Use
  Company Number: A0685010A

PATIENT
  Sex: Female

DRUGS (2)
  1. VALTREX [Suspect]
     Dosage: 1G TWICE PER DAY
     Route: 048
     Dates: start: 20070926
  2. CLARITIN [Concomitant]
     Indication: SINUS CONGESTION
     Route: 048

REACTIONS (2)
  - HEADACHE [None]
  - SINUS CONGESTION [None]
